FAERS Safety Report 13801961 (Version 1)
Quarter: 2017Q3

REPORT INFORMATION
  Report Type: Spontaneous
  Country: US (occurrence: US)
  Receive Date: 20170727
  Receipt Date: 20170727
  Transmission Date: 20171127
  Serious: No
  Sender: FDA-Public Use
  Company Number: GXBR2017US001228

PATIENT
  Sex: Female

DRUGS (1)
  1. TIMOLOL GFS [Suspect]
     Active Substance: TIMOLOL MALEATE
     Indication: GLAUCOMA
     Dosage: UNK DF, UNK
     Route: 047

REACTIONS (8)
  - Fatigue [Unknown]
  - Decreased appetite [Unknown]
  - Heart rate decreased [Unknown]
  - Nausea [Unknown]
  - Drug ineffective [Unknown]
  - Asthenia [Unknown]
  - Dry mouth [Unknown]
  - Ageusia [Unknown]
